FAERS Safety Report 14338597 (Version 3)
Quarter: 2018Q2

REPORT INFORMATION
  Report Type: Spontaneous
  Country: CA (occurrence: CA)
  Receive Date: 20171229
  Receipt Date: 20180508
  Transmission Date: 20180711
  Serious: Yes (Hospitalization)
  Sender: FDA-Public Use
  Company Number: CA-PFIZER INC-2017554767

PATIENT
  Age: 54 Year
  Sex: Female

DRUGS (19)
  1. FENTANYL. [Concomitant]
     Active Substance: FENTANYL
     Dosage: 25 UG, QOD
     Route: 065
  2. OXYCONTIN [Concomitant]
     Active Substance: OXYCODONE HYDROCHLORIDE
     Dosage: 20 MG, 8/DAY
     Route: 065
  3. PANTOPRAZOLE [Suspect]
     Active Substance: PANTOPRAZOLE
     Indication: NAUSEA
     Dosage: 40 MG, QD
     Route: 065
  4. SANDOSTATIN [Suspect]
     Active Substance: OCTREOTIDE ACETATE
     Dosage: 30 MG, MONTHLY
     Route: 030
  5. CYCLOBENZAPRINE. [Concomitant]
     Active Substance: CYCLOBENZAPRINE
     Dosage: 10 MG, UNK
     Route: 065
  6. SANDOSTATIN [Suspect]
     Active Substance: OCTREOTIDE ACETATE
     Dosage: 30 MG, UNK
     Route: 030
  7. SANDOSTATIN [Suspect]
     Active Substance: OCTREOTIDE ACETATE
     Dosage: 30 MG, MONTHLY
     Route: 030
     Dates: start: 20151217, end: 20171101
  8. SANDOSTATIN [Suspect]
     Active Substance: OCTREOTIDE ACETATE
     Indication: CARCINOID TUMOUR
     Dosage: UNK
     Route: 058
  9. FENTANYL. [Concomitant]
     Active Substance: FENTANYL
     Dosage: 25.0 MG, UNK
     Route: 065
  10. SANDOSTATIN [Suspect]
     Active Substance: OCTREOTIDE ACETATE
     Dosage: 30 MG, UNK
     Route: 030
  11. VERAPAMIL [Concomitant]
     Active Substance: VERAPAMIL HYDROCHLORIDE
     Dosage: 120 MG, QD
     Route: 065
  12. AMOXICILLIN. [Concomitant]
     Active Substance: AMOXICILLIN
     Dosage: 1500 MG, QD
     Route: 065
  13. AMOXICILLIN. [Concomitant]
     Active Substance: AMOXICILLIN
     Dosage: 500 MG, TID
     Route: 065
     Dates: start: 201703
  14. SANDOSTATIN [Suspect]
     Active Substance: OCTREOTIDE ACETATE
     Indication: CARCINOID TUMOUR
     Dosage: 30 MG, UNK
     Route: 030
  15. ACETAMINOPHEN W/OXYCODONE HYDROCHLORIDE [Concomitant]
     Active Substance: ACETAMINOPHEN\OXYCODONE HYDROCHLORIDE
     Dosage: 325 MG, 12/DAY
     Route: 065
  16. TRAZODONE [Concomitant]
     Active Substance: TRAZODONE HYDROCHLORIDE
     Dosage: 50 MG, BID
     Route: 065
  17. ACETAMINOPHEN W/OXYCODONE HYDROCHLORIDE [Concomitant]
     Active Substance: ACETAMINOPHEN\OXYCODONE HYDROCHLORIDE
     Dosage: 325.0 MG, UNK
     Route: 065
  18. CONJUGATED ESTROGENS [Concomitant]
     Active Substance: ESTROGENS, CONJUGATED
     Dosage: 1.25 MG, QD
     Route: 065
  19. CYCLOBENZAPRINE. [Concomitant]
     Active Substance: CYCLOBENZAPRINE
     Dosage: 10 MG, UNK
     Route: 065

REACTIONS (27)
  - Bile duct stone [Unknown]
  - Migraine [Unknown]
  - Nausea [Unknown]
  - Pyrexia [Unknown]
  - Fatigue [Unknown]
  - Gallbladder oedema [Unknown]
  - Sinusitis [Unknown]
  - Yellow skin [Unknown]
  - Blood pressure increased [Unknown]
  - Muscle strain [Unknown]
  - Back pain [Unknown]
  - Body temperature decreased [Unknown]
  - Drug ineffective [Unknown]
  - Faeces pale [Unknown]
  - Pain [Unknown]
  - Abdominal pain [Unknown]
  - Abdominal pain upper [Unknown]
  - Diarrhoea [Unknown]
  - Headache [Unknown]
  - Injection site pain [Unknown]
  - Inappropriate schedule of drug administration [Unknown]
  - Asthenia [Unknown]
  - Flushing [Unknown]
  - Injection site bruising [Unknown]
  - Abdominal discomfort [Unknown]
  - Hepatic enzyme increased [Unknown]
  - Malaise [Unknown]

NARRATIVE: CASE EVENT DATE: 20120906
